FAERS Safety Report 7452226-0 (Version None)
Quarter: 2011Q2

REPORT INFORMATION
  Report Type: 
  Country: None (occurrence: None)
  Receive Date: 20110502
  Receipt Date: 20110321
  Transmission Date: 20111010
  Serious: Yes (Other)
  Sender: FDA-Public Use
  Company Number: GB-GENZYME-FLUD-1000778

PATIENT

DRUGS (4)
  1. MELPHALAN [Suspect]
     Indication: STEM CELL TRANSPLANT
     Dosage: 140 MG/M2, QD ON DAY -2
     Route: 065
  2. FLUDARA [Suspect]
     Indication: STEM CELL TRANSPLANT
     Dosage: 30 MG/M2, QD ON DAYS -7 TO -3
     Route: 065
  3. CAMPATH [Suspect]
     Indication: STEM CELL TRANSPLANT
     Dosage: UNK
     Route: 065
  4. CYCLOSPORINE [Concomitant]
     Indication: PRODUCT USED FOR UNKNOWN INDICATION
     Dosage: 3 MG/KG, QD FROM DAY -1 AND TAPERED FROM 3 MONTHS
     Route: 042

REACTIONS (18)
  - INFLUENZA [None]
  - HERPES SIMPLEX [None]
  - HERPES ZOSTER [None]
  - PNEUMOCYSTIS JIROVECI PNEUMONIA [None]
  - ADENOVIRUS INFECTION [None]
  - METAPNEUMOVIRUS INFECTION [None]
  - CHRONIC GRAFT VERSUS HOST DISEASE [None]
  - VIRAL INFECTION [None]
  - EPSTEIN-BARR VIRUS ASSOCIATED LYMPHOPROLIFERATIVE DISORDER [None]
  - ACUTE GRAFT VERSUS HOST DISEASE [None]
  - GASTROINTESTINAL FUNGAL INFECTION [None]
  - RESPIRATORY SYNCYTIAL VIRUS INFECTION [None]
  - MOLLUSCUM CONTAGIOSUM [None]
  - PARAINFLUENZAE VIRUS INFECTION [None]
  - RESPIRATORY TRACT INFECTION FUNGAL [None]
  - CYTOMEGALOVIRUS INFECTION [None]
  - ROTAVIRUS INFECTION [None]
  - TUBERCULOSIS [None]
